FAERS Safety Report 9608465 (Version 2)
Quarter: 2014Q1

REPORT INFORMATION
  Report Type: Spontaneous
  Country: US (occurrence: US)
  Receive Date: 20131009
  Receipt Date: 20140121
  Transmission Date: 20141002
  Serious: Yes (Life-Threatening, Hospitalization)
  Sender: FDA-Public Use
  Company Number: US-BAYER-2013-121437

PATIENT
  Age: 23 Year
  Sex: Female
  Weight: 72.11 kg

DRUGS (4)
  1. MIRENA [Suspect]
     Dosage: 20 MCG/24HR, CONT
     Route: 015
     Dates: start: 20081108, end: 200811
  2. LORTAB [Concomitant]
  3. DULCOLAX PICOSULFAT [Concomitant]
  4. CITRATE DE BETAINE [Concomitant]

REACTIONS (9)
  - Uterine perforation [None]
  - Pain [None]
  - Injury [None]
  - General physical health deterioration [None]
  - Anxiety [None]
  - Anhedonia [None]
  - Emotional distress [None]
  - Device misuse [None]
  - Device dislocation [None]
